FAERS Safety Report 9109441 (Version 1)
Quarter: 2013Q1

REPORT INFORMATION
  Report Type: Spontaneous
  Country: BR (occurrence: BR)
  Receive Date: 20130222
  Receipt Date: 20130222
  Transmission Date: 20140127
  Serious: Yes (Other)
  Sender: FDA-Public Use
  Company Number: PHHY2013BR014928

PATIENT
  Age: 44 Year
  Sex: Female
  Weight: 72 kg

DRUGS (8)
  1. FENTANYL [Suspect]
     Indication: GENERAL ANAESTHESIA
     Dosage: 150 UG, UNK
  2. FENTANYL [Suspect]
     Dosage: 250 UG, UNK
  3. PROPOFOL [Suspect]
     Indication: GENERAL ANAESTHESIA
     Dosage: 120 MG, UNK
  4. PROPOFOL [Suspect]
     Dosage: 180 MG, UNK
  5. SUCCINYLCHOLINE CHLORIDE [Suspect]
     Indication: GENERAL ANAESTHESIA
     Dosage: 80 MG, UNK
  6. MIDAZOLAM [Suspect]
     Dosage: 3 MG, UNK
  7. CISATRACURIUM BESILATE [Concomitant]
     Dosage: 10 MG, UNK
  8. ROCURONIUM BROMIDE [Concomitant]
     Dosage: 30 MG, UNK

REACTIONS (10)
  - Sepsis [Unknown]
  - Renal failure acute [Unknown]
  - Acute respiratory distress syndrome [Unknown]
  - Hypovolaemia [Unknown]
  - Cardiac arrest [Recovered/Resolved]
  - Hypotension [Recovered/Resolved]
  - Sinus bradycardia [Recovered/Resolved]
  - Pulseless electrical activity [Recovered/Resolved]
  - Ventricular extrasystoles [Recovered/Resolved]
  - Ventricular tachycardia [Recovered/Resolved]
